FAERS Safety Report 8063471-8 (Version None)
Quarter: 2012Q1

REPORT INFORMATION
  Report Type: 
  Country: None (occurrence: None)
  Receive Date: 20120123
  Receipt Date: 20120113
  Transmission Date: 20120608
  Serious: Yes (Hospitalization)
  Sender: FDA-Public Use
  Company Number: PHFR2012GB000673

PATIENT
  Age: 20 Year
  Sex: Female

DRUGS (2)
  1. ACETAMINOPHEN [Concomitant]
     Route: 048
  2. IMATINIB MESYLATE [Suspect]
     Dosage: UNK

REACTIONS (2)
  - INTENTIONAL SELF-INJURY [None]
  - INTENTIONAL OVERDOSE [None]
